FAERS Safety Report 13505194 (Version 1)
Quarter: 2017Q2

REPORT INFORMATION
  Report Type: Spontaneous
  Country: US (occurrence: US)
  Receive Date: 20170502
  Receipt Date: 20170502
  Transmission Date: 20170830
  Serious: No
  Sender: FDA-Public Use
  Company Number: US-CELGENEUS-USA-20170409962

PATIENT
  Age: 60 Year
  Sex: Female
  Weight: 51.76 kg

DRUGS (8)
  1. POMALYST [Suspect]
     Active Substance: POMALIDOMIDE
     Dosage: 3 MILLIGRAM
     Route: 048
     Dates: start: 201610
  2. DEXAMETHSONE [Concomitant]
     Route: 065
     Dates: start: 201609
  3. DEXAMETHSONE [Concomitant]
     Route: 065
     Dates: start: 201610, end: 201703
  4. OPDIVO [Concomitant]
     Active Substance: NIVOLUMAB
     Indication: PLASMA CELL MYELOMA
     Route: 065
     Dates: start: 20170320
  5. DEXAMETHSONE [Concomitant]
     Indication: PLASMA CELL MYELOMA
     Route: 065
     Dates: start: 201406, end: 201411
  6. DEXAMETHSONE [Concomitant]
     Route: 065
     Dates: start: 20160314
  7. POMALYST [Suspect]
     Active Substance: POMALIDOMIDE
     Dosage: 2 MILLIGRAM
     Route: 048
     Dates: start: 201704
  8. POMALYST [Suspect]
     Active Substance: POMALIDOMIDE
     Indication: PLASMA CELL MYELOMA
     Dosage: 4 MILLIGRAM
     Route: 048
     Dates: start: 201609

REACTIONS (10)
  - Asthenia [Unknown]
  - Alopecia [Not Recovered/Not Resolved]
  - Light chain analysis increased [Unknown]
  - Chest pain [Unknown]
  - Plasmacytoma [Unknown]
  - Drug intolerance [Unknown]
  - Osteoporosis [Unknown]
  - White blood cell count decreased [Unknown]
  - Fatigue [Unknown]
  - Constipation [Unknown]

NARRATIVE: CASE EVENT DATE: 2016
